FAERS Safety Report 9436693 (Version 3)
Quarter: 2013Q3

REPORT INFORMATION
  Report Type: Report from Study
  Country: US (occurrence: US)
  Receive Date: 20130802
  Receipt Date: 20130919
  Transmission Date: 20140515
  Serious: Yes (Death, Hospitalization, Other)
  Sender: FDA-Public Use
  Company Number: US-CELGENEUS-163-21880-13074607

PATIENT
  Age: 81 Year
  Sex: Male
  Weight: 87.3 kg

DRUGS (22)
  1. REVLIMID [Suspect]
     Indication: MYELODYSPLASTIC SYNDROME
     Dosage: 10 MILLIGRAM
     Route: 048
     Dates: start: 20120424
  2. REVLIMID [Suspect]
     Dosage: 10 MILLIGRAM
     Route: 048
     Dates: start: 20120717, end: 20120806
  3. AZACITIDINE [Suspect]
     Indication: MYELODYSPLASTIC SYNDROME
     Dosage: 150 MILLIGRAM
     Route: 058
     Dates: start: 20120813
  4. AZACITIDINE [Suspect]
     Dosage: 150 MILLIGRAM
     Route: 041
     Dates: start: 20120917
  5. AZACITIDINE [Suspect]
     Dosage: 150 MILLIGRAM
     Route: 041
     Dates: start: 20121022, end: 20121024
  6. EPOETIN ALFA [Suspect]
     Indication: MYELODYSPLASTIC SYNDROME
     Dosage: 60,000 UNITS
     Route: 058
     Dates: start: 20120424
  7. EPOETIN ALFA [Suspect]
     Dosage: 60,000 UNITS
     Route: 058
     Dates: start: 20120717, end: 20120731
  8. EXJADE [Concomitant]
     Indication: IRON OVERLOAD
     Dosage: 200 MILLIGRAM
     Route: 048
     Dates: start: 20120415
  9. DOXAZOSIN [Concomitant]
     Indication: HYPERTENSION
     Dosage: 2 MILLIGRAM
     Route: 048
  10. ASA [Concomitant]
     Indication: PROPHYLAXIS
     Dosage: 81 MILLIGRAM
     Route: 048
  11. MIRALAX [Concomitant]
     Indication: PRODUCT USED FOR UNKNOWN INDICATION
     Route: 048
  12. MULTIVITAMINS [Concomitant]
     Indication: PRODUCT USED FOR UNKNOWN INDICATION
     Dosage: 1 TABLET
     Route: 048
  13. TUSSIONEX [Concomitant]
     Indication: PRODUCT USED FOR UNKNOWN INDICATION
     Dosage: 10 MILLIGRAM
     Route: 048
  14. PACKED RED BLOOD CELL [Concomitant]
     Indication: PRODUCT USED FOR UNKNOWN INDICATION
     Route: 041
     Dates: start: 20120307
  15. PACKED RED BLOOD CELL [Concomitant]
     Route: 041
     Dates: start: 20120413
  16. VANCOMYCIN [Concomitant]
     Indication: ESCHERICHIA INFECTION
     Route: 065
     Dates: start: 201306
  17. ZOSYN [Concomitant]
     Indication: ESCHERICHIA INFECTION
     Route: 065
     Dates: start: 201306
  18. CEFEPIME [Concomitant]
     Indication: ESCHERICHIA INFECTION
     Route: 065
     Dates: start: 201306
  19. DILAUDID [Concomitant]
     Indication: DRUG THERAPY
     Route: 065
     Dates: start: 201306
  20. LORAZEPAM [Concomitant]
     Indication: DRUG THERAPY
     Route: 065
     Dates: start: 201306
  21. DUONEB [Concomitant]
     Indication: COUGH
     Route: 065
     Dates: start: 201210
  22. CARDURA [Concomitant]
     Indication: PRODUCT USED FOR UNKNOWN INDICATION
     Dosage: 2 MILLIGRAM
     Route: 065

REACTIONS (2)
  - Escherichia sepsis [Fatal]
  - Lung adenocarcinoma metastatic [Not Recovered/Not Resolved]
